FAERS Safety Report 18103901 (Version 4)
Quarter: 2020Q4

REPORT INFORMATION
  Report Type: Report from Study
  Country: FR (occurrence: FR)
  Receive Date: 20200803
  Receipt Date: 20201104
  Transmission Date: 20210113
  Serious: Yes (Death, Hospitalization)
  Sender: FDA-Public Use
  Company Number: FR-PFIZER INC-2020290852

PATIENT
  Age: 71 Year
  Sex: Female
  Weight: 51 kg

DRUGS (5)
  1. LORLATINIB [Suspect]
     Active Substance: LORLATINIB
     Indication: BRONCHIAL CARCINOMA
     Dosage: 100 MG, 1X/DAY
     Route: 048
     Dates: start: 20190521, end: 201906
  2. FENOFIBRATE. [Concomitant]
     Active Substance: FENOFIBRATE
     Indication: PROPHYLAXIS
     Dosage: UNK
     Route: 048
     Dates: start: 20190501
  3. CRIZOTINIB [Suspect]
     Active Substance: CRIZOTINIB
     Dosage: 250 MG, 2X/DAY
     Dates: start: 20180506, end: 20181107
  4. CERITINIB [Suspect]
     Active Substance: CERITINIB
     Indication: BRONCHIAL CARCINOMA
     Dosage: UNK
     Route: 048
     Dates: start: 20181108, end: 20190520
  5. PRAVASTATIN. [Concomitant]
     Active Substance: PRAVASTATIN
     Indication: PROPHYLAXIS
     Dosage: UNK
     Route: 048
     Dates: start: 20190521

REACTIONS (2)
  - Acute respiratory failure [Fatal]
  - Neoplasm progression [Fatal]

NARRATIVE: CASE EVENT DATE: 20190515
